FAERS Safety Report 7691331-0 (Version None)
Quarter: 2011Q3

REPORT INFORMATION
  Report Type: 
  Country: None (occurrence: None)
  Receive Date: 20110818
  Receipt Date: 20110809
  Transmission Date: 20111222
  Serious: Yes (Other)
  Sender: FDA-Public Use
  Company Number: DE-NOVOPROD-328108

PATIENT

DRUGS (5)
  1. FRESH FROZEN PLASMA [Concomitant]
     Indication: HAEMORRHAGE
     Dosage: 4 DF, QD
     Dates: start: 20070815, end: 20070815
  2. RED BLOOD CELLS [Concomitant]
     Indication: HAEMORRHAGE
     Dosage: 7 DF, QD
     Dates: start: 20070815, end: 20070815
  3. PLATELETS [Concomitant]
     Indication: HAEMORRHAGE
     Dosage: 2 DF, QD
     Dates: start: 20070815, end: 20070815
  4. NOVOSEVEN [Suspect]
     Indication: POST PROCEDURAL HAEMORRHAGE
     Dosage: 4.8 MG, QD
     Dates: start: 20070815, end: 20070817
  5. TRANEXAMIC ACID [Suspect]
     Indication: PROCOAGULANT THERAPY
     Dosage: 100 MG/KG, SINGLE
     Route: 042

REACTIONS (1)
  - CONVULSION [None]
